FAERS Safety Report 8257523-7 (Version None)
Quarter: 2012Q2

REPORT INFORMATION
  Report Type: 
  Country: None (occurrence: None)
  Receive Date: 20120403
  Receipt Date: 20120319
  Transmission Date: 20120825
  Serious: Yes (Congenital Anomaly, Other)
  Sender: FDA-Public Use
  Company Number: TR-WATSON-2012-05019

PATIENT

DRUGS (2)
  1. OXCARBAZEPINE [Suspect]
     Indication: BRAIN OPERATION
     Dosage: 300 MG, UNK
     Route: 064
  2. TOPIRAMATE [Suspect]
     Indication: BRAIN OPERATION
     Dosage: 100 MG, UNK
     Route: 064

REACTIONS (9)
  - CLEFT PALATE [None]
  - MATERNAL EXPOSURE DURING PREGNANCY [None]
  - RENAL HYPOPLASIA [None]
  - LIMB MALFORMATION [None]
  - ADRENAL DISORDER [None]
  - RENAL APLASIA [None]
  - ANORECTAL DISORDER [None]
  - CLEFT LIP [None]
  - BLADDER DISORDER [None]
